FAERS Safety Report 8831322 (Version 1)
Quarter: 2012Q4

REPORT INFORMATION
  Report Type: Report from Study
  Country: CA (occurrence: CA)
  Receive Date: 20121009
  Receipt Date: 20121009
  Transmission Date: 20130627
  Serious: Yes (Other)
  Sender: FDA-Public Use
  Company Number: CA-JNJFOC-20120912840

PATIENT
  Age: 41 Year
  Sex: Male
  Weight: 72 kg

DRUGS (3)
  1. REMICADE [Suspect]
     Indication: CROHN^S DISEASE
     Route: 042
     Dates: start: 20060921
  2. REMICADE [Suspect]
     Indication: CROHN^S DISEASE
     Route: 042
     Dates: start: 20120927
  3. AERIUS [Concomitant]
     Indication: PREMEDICATION
     Route: 065

REACTIONS (3)
  - Sinus congestion [Recovering/Resolving]
  - Infusion related reaction [Recovering/Resolving]
  - Headache [Recovering/Resolving]
